FAERS Safety Report 19483643 (Version 1)
Quarter: 2021Q3

REPORT INFORMATION
  Report Type: Spontaneous
  Country: US (occurrence: US)
  Receive Date: 20210701
  Receipt Date: 20210701
  Transmission Date: 20211014
  Serious: No
  Sender: FDA-Public Use
  Company Number: US-ROCHE-2693157

PATIENT
  Sex: Male
  Weight: 72.64 kg

DRUGS (10)
  1. RIVOTRIL [Concomitant]
     Active Substance: CLONAZEPAM
     Indication: NERVOUS SYSTEM DISORDER
     Dosage: ONGOING NO
     Dates: start: 2018
  2. ATACAND [Concomitant]
     Active Substance: CANDESARTAN CILEXETIL
     Indication: BLOOD PRESSURE MEASUREMENT
     Dosage: ONGOING: YES
     Dates: start: 2014
  3. KLONOPIN [Suspect]
     Active Substance: CLONAZEPAM
     Indication: BURNING SENSATION
  4. ASPIRIN 81 [Concomitant]
     Active Substance: ASPIRIN
     Dosage: ONGOING: YES
  5. XANAX [Concomitant]
     Active Substance: ALPRAZOLAM
     Indication: NERVOUS SYSTEM DISORDER
     Dosage: HALF A TABLET IN THE MORNING AND HALF IN THE EVENT; ONGOING NO
     Dates: start: 2014
  6. KLONOPIN [Suspect]
     Active Substance: CLONAZEPAM
     Indication: HERPES ZOSTER
  7. KLONOPIN [Suspect]
     Active Substance: CLONAZEPAM
     Indication: NERVOUS SYSTEM DISORDER
  8. EFFEXOR [Concomitant]
     Active Substance: VENLAFAXINE HYDROCHLORIDE
  9. LYRICA [Concomitant]
     Active Substance: PREGABALIN
  10. KLONOPIN [Suspect]
     Active Substance: CLONAZEPAM
     Indication: ANXIETY
     Dosage: ONGOING: YES
     Route: 048
     Dates: start: 20200924

REACTIONS (11)
  - Intentional product use issue [Unknown]
  - Malaise [Unknown]
  - Pain [Unknown]
  - Off label use [Unknown]
  - Condition aggravated [Unknown]
  - Sleep disorder [Unknown]
  - Drug interaction [Unknown]
  - Discomfort [Not Recovered/Not Resolved]
  - Headache [Not Recovered/Not Resolved]
  - Hypotonia [Not Recovered/Not Resolved]
  - Burning sensation [Unknown]
